FAERS Safety Report 25947258 (Version 1)
Quarter: 2025Q4

REPORT INFORMATION
  Report Type: Spontaneous
  Country: CA (occurrence: CA)
  Receive Date: 20251022
  Receipt Date: 20251022
  Transmission Date: 20260117
  Serious: Yes (Hospitalization)
  Sender: STRIDES
  Company Number: CA-STRIDES ARCOLAB LIMITED-2025SP013117

PATIENT
  Age: 53 Year
  Sex: Male

DRUGS (5)
  1. OLANZAPINE [Suspect]
     Active Substance: OLANZAPINE
     Indication: Bipolar I disorder
     Dosage: 15 MILLIGRAM, BID
     Route: 048
  2. OLANZAPINE [Suspect]
     Active Substance: OLANZAPINE
     Dosage: UNK, DOSE REDUCED
     Route: 048
  3. VALPROIC ACID [Suspect]
     Active Substance: VALPROIC ACID
     Indication: Bipolar I disorder
     Dosage: 500 MILLIGRAM, IN THE MORNING
     Route: 048
  4. VALPROIC ACID [Suspect]
     Active Substance: VALPROIC ACID
     Dosage: 1500 MILLIGRAM, AT BEDTIME
     Route: 048
  5. VALPROIC ACID [Suspect]
     Active Substance: VALPROIC ACID
     Dosage: DOSE REDUCED TO TO 1000MG AT BEDTIME
     Route: 048

REACTIONS (5)
  - Aphasia [Unknown]
  - Insomnia [Unknown]
  - Confusional state [Unknown]
  - Speech latency [Unknown]
  - Treatment noncompliance [Unknown]
